FAERS Safety Report 7942464-2 (Version None)
Quarter: 2011Q4

REPORT INFORMATION
  Report Type: 
  Country: None (occurrence: None)
  Receive Date: 20111128
  Receipt Date: 20111116
  Transmission Date: 20120403
  Serious: Yes (Hospitalization)
  Sender: FDA-Public Use
  Company Number: CA-GLAXOSMITHKLINE-A0934667A

PATIENT
  Sex: Female
  Weight: 100 kg

DRUGS (2)
  1. ADVAIR DISKUS 100/50 [Suspect]
     Indication: CHRONIC OBSTRUCTIVE PULMONARY DISEASE
     Dosage: 1PUFF TWICE PER DAY
     Route: 055
     Dates: start: 20040101
  2. VENTOLIN [Concomitant]
     Route: 065

REACTIONS (9)
  - WHEEZING [None]
  - ASTHMA [None]
  - INCREASED UPPER AIRWAY SECRETION [None]
  - CHEST DISCOMFORT [None]
  - COUGH [None]
  - ASTHENIA [None]
  - PRODUCTIVE COUGH [None]
  - DYSPNOEA [None]
  - TREATMENT NONCOMPLIANCE [None]
